FAERS Safety Report 4678982-2 (Version None)
Quarter: 2005Q2

REPORT INFORMATION
  Report Type: 
  Country: None (occurrence: None)
  Receive Date: 20050531
  Receipt Date: 20050524
  Transmission Date: 20051028
  Serious: Yes (Other)
  Sender: FDA-Public Use
  Company Number: A0560085A

PATIENT
  Sex: Female

DRUGS (1)
  1. WELLBUTRIN [Suspect]
     Indication: DRUG ABUSER
     Dosage: 150 MG/TWICE PER DAY/ ORAL
     Route: 048

REACTIONS (2)
  - CONVULSION [None]
  - ROAD TRAFFIC ACCIDENT [None]
